FAERS Safety Report 6265292-5 (Version None)
Quarter: 2009Q3

REPORT INFORMATION
  Report Type: 
  Country: None (occurrence: None)
  Receive Date: 20090708
  Receipt Date: 20090624
  Transmission Date: 20100115
  Serious: Yes (Death, Hospitalization)
  Sender: FDA-Public Use
  Company Number: 8047324

PATIENT
  Age: 52 Year
  Sex: Female
  Weight: 70 kg

DRUGS (7)
  1. CDP870 [Suspect]
     Indication: RHEUMATOID ARTHRITIS
     Dosage: 400 MG 1/2W SC
     Route: 058
     Dates: start: 20051212, end: 20060529
  2. CDP870 [Suspect]
     Indication: RHEUMATOID ARTHRITIS
     Dosage: 200 MG 1/2W SC
     Route: 058
     Dates: start: 20060529, end: 20090513
  3. CELECOXIB [Concomitant]
  4. METHYLPREDNISOLON /00049601/ [Concomitant]
  5. METHOTREXATE [Concomitant]
  6. FOLIC ACID [Concomitant]
  7. CALCIGRAN /00944201/ [Concomitant]

REACTIONS (14)
  - ARTERIOSCLEROTIC RETINOPATHY [None]
  - BLOOD PRESSURE IMMEASURABLE [None]
  - BLOOD PRESSURE INCREASED [None]
  - CANDIDIASIS [None]
  - CARDIAC ARREST [None]
  - CEREBRAL ISCHAEMIA [None]
  - CNS VENTRICULITIS [None]
  - DRUG INEFFECTIVE [None]
  - ENCEPHALITIS [None]
  - GLASGOW COMA SCALE ABNORMAL [None]
  - HYDROCEPHALUS [None]
  - HYPOVENTILATION [None]
  - LUNG INFILTRATION [None]
  - PAPILLOEDEMA [None]
